FAERS Safety Report 7621397-5 (Version None)
Quarter: 2011Q3

REPORT INFORMATION
  Report Type: 
  Country: None (occurrence: None)
  Receive Date: 20110719
  Receipt Date: 20110712
  Transmission Date: 20111222
  Serious: Yes (Other)
  Sender: FDA-Public Use
  Company Number: GB-PFIZER INC-2011067850

PATIENT
  Age: 44 Year
  Sex: Male

DRUGS (1)
  1. LATANOPROST [Suspect]
     Dosage: UNK

REACTIONS (3)
  - BLOOD CREATINE PHOSPHOKINASE INCREASED [None]
  - INFLUENZA [None]
  - MYALGIA [None]
